FAERS Safety Report 9906199 (Version 2)
Quarter: 2014Q1

REPORT INFORMATION
  Report Type: Spontaneous
  Country: IN (occurrence: IN)
  Receive Date: 20140218
  Receipt Date: 20140218
  Transmission Date: 20141002
  Serious: Yes (Hospitalization)
  Sender: FDA-Public Use
  Company Number: IN-SA-2013SA132658

PATIENT
  Sex: Female
  Weight: 68 kg

DRUGS (2)
  1. THYROGEN [Suspect]
     Indication: THERAPEUTIC PROCEDURE
     Route: 030
     Dates: start: 20131214, end: 20131215
  2. INSULIN [Concomitant]
     Indication: DIABETES MELLITUS
     Dosage: DOSE:14 UNIT(S)

REACTIONS (8)
  - Parotitis [Recovered/Resolved]
  - Swelling [Recovered/Resolved]
  - Tenderness [Recovered/Resolved]
  - Central nervous system lesion [Unknown]
  - Intracranial pressure increased [Recovered/Resolved]
  - Vomiting [Recovered/Resolved]
  - Nausea [Recovered/Resolved]
  - Pain [Unknown]
